FAERS Safety Report 12965260 (Version 1)
Quarter: 2016Q4

REPORT INFORMATION
  Report Type: Spontaneous
  Country: FR (occurrence: FR)
  Receive Date: 20161122
  Receipt Date: 20161122
  Transmission Date: 20170207
  Serious: Yes (Life-Threatening, Hospitalization)
  Sender: FDA-Public Use
  Company Number: PHHY2016FR156883

PATIENT
  Age: 28 Year
  Sex: Female
  Weight: 85.5 kg

DRUGS (18)
  1. ATARAX [Suspect]
     Active Substance: HYDROXYZINE\HYDROXYZINE HYDROCHLORIDE
     Indication: TOXICITY TO VARIOUS AGENTS
     Dosage: 21 DF ONE SINGLE INTAKE
     Route: 048
     Dates: start: 20160117, end: 20160117
  2. NALTREXONE HYDROCHLORIDE. [Concomitant]
     Active Substance: NALTREXONE HYDROCHLORIDE
     Indication: TOXICITY TO VARIOUS AGENTS
     Dosage: 28 DF ONE SINGLE INTAKE
     Route: 048
     Dates: start: 20160117, end: 20160117
  3. OMEPRAZOLE. [Concomitant]
     Active Substance: OMEPRAZOLE
     Indication: TOXICITY TO VARIOUS AGENTS
     Dosage: 5 DF ONE SINGLE INTAKE
     Route: 048
     Dates: start: 20160117, end: 20160117
  4. THERALENE [Suspect]
     Active Substance: TRIMEPRAZINE
     Indication: TOXICITY TO VARIOUS AGENTS
     Dosage: 43 DF, ONE SINGLE INTAKE
     Route: 048
     Dates: start: 20160117, end: 20160117
  5. SULFARLEM [Concomitant]
     Active Substance: ANETHOLTRITHION
     Indication: TOXICITY TO VARIOUS AGENTS
     Dosage: 150 DF ONE SINGLE INTAKE
     Route: 048
     Dates: start: 20160117, end: 20160117
  6. BACLOFEN. [Suspect]
     Active Substance: BACLOFEN
     Indication: TOXICITY TO VARIOUS AGENTS
     Dosage: 96 DF ONE SINGLE INTAKE
     Route: 048
     Dates: start: 20160117, end: 20160117
  7. ALPRAZOLAM. [Suspect]
     Active Substance: ALPRAZOLAM
     Indication: TOXICITY TO VARIOUS AGENTS
     Dosage: 68 DF ONE SINGLE INTAKE
     Route: 048
     Dates: start: 20160117, end: 20160117
  8. ZYRTEC [Suspect]
     Active Substance: CETIRIZINE HYDROCHLORIDE
     Indication: TOXICITY TO VARIOUS AGENTS
     Dosage: 15 DF ONE SINGLE INTAKE
     Route: 048
     Dates: start: 20160117, end: 20160117
  9. VERATRAN [Suspect]
     Active Substance: CLOTIAZEPAM
     Indication: TOXICITY TO VARIOUS AGENTS
     Dosage: 18 DF, UNK
     Route: 048
     Dates: start: 20160117, end: 20160117
  10. KETUM [Concomitant]
     Active Substance: KETOPROFEN
     Indication: TOXICITY TO VARIOUS AGENTS
     Dosage: 85 DF ONE SINGLE INTAKE
     Route: 048
     Dates: start: 20160117, end: 20160117
  11. XEROQUEL [Suspect]
     Active Substance: QUETIAPINE FUMARATE
     Indication: TOXICITY TO VARIOUS AGENTS
     Dosage: 44 DF, ONE SINGLE INTAKE
     Route: 048
     Dates: start: 20160117, end: 20160117
  12. ZOPICLONE [Concomitant]
     Active Substance: ZOPICLONE
     Indication: TOXICITY TO VARIOUS AGENTS
     Dosage: 11 DF ONE SINGLE INTAKE
     Route: 048
     Dates: start: 20160117, end: 20160117
  13. SPASFON [Concomitant]
     Active Substance: PHLOROGLUCINOL
     Indication: TOXICITY TO VARIOUS AGENTS
     Dosage: 20 DF ONE SINGLE INTAKE
     Route: 048
     Dates: start: 20160117, end: 20160117
  14. IBUPROFEN. [Concomitant]
     Active Substance: IBUPROFEN
     Indication: TOXICITY TO VARIOUS AGENTS
     Dosage: 12 DF ONE SINGLE INTAKE
     Route: 048
     Dates: start: 20160117, end: 20160117
  15. DOLIPRANE [Concomitant]
     Active Substance: ACETAMINOPHEN
     Indication: TOXICITY TO VARIOUS AGENTS
     Dosage: 8 DF ONE SINGLE INTAKE
     Route: 048
     Dates: start: 20160117, end: 20160117
  16. VENLAFAXINE [Suspect]
     Active Substance: VENLAFAXINE HYDROCHLORIDE
     Indication: TOXICITY TO VARIOUS AGENTS
     Dosage: 79 DF ONE SINGLE INTAKE
     Route: 048
     Dates: start: 20160117, end: 20160117
  17. PYOSTACINE [Concomitant]
     Active Substance: PRISTINAMYCIN
     Indication: TOXICITY TO VARIOUS AGENTS
     Dosage: 20 DF ONE SINGLE INTAKE
     Route: 048
     Dates: start: 20160117, end: 20160117
  18. ASPIRIN. [Concomitant]
     Active Substance: ASPIRIN
     Indication: TOXICITY TO VARIOUS AGENTS
     Dosage: 14 DF ONE SINGLE INTAKE
     Route: 048
     Dates: start: 20160117, end: 20160117

REACTIONS (7)
  - Drug withdrawal convulsions [Recovered/Resolved]
  - Hepatocellular injury [Recovered/Resolved]
  - Alcohol withdrawal syndrome [Recovered/Resolved]
  - Electrocardiogram QT prolonged [Recovered/Resolved]
  - Coma [Recovered/Resolved]
  - Seizure [Recovered/Resolved]
  - Toxicity to various agents [Recovered/Resolved]

NARRATIVE: CASE EVENT DATE: 20160117
